FAERS Safety Report 10215629 (Version 13)
Quarter: 2015Q2

REPORT INFORMATION
  Report Type: Spontaneous
  Country: US (occurrence: None)
  Receive Date: 20140602
  Receipt Date: 20150526
  Transmission Date: 20150821
  Serious: Yes (Life-Threatening, Hospitalization, Other)
  Sender: FDA-Public Use
  Company Number: ADR-2014-00111

PATIENT
  Age: 11 Year
  Sex: Female

DRUGS (6)
  1. BACLOFEN. [Suspect]
     Active Substance: BACLOFEN
     Dosage: (5 MG/5 ML) 2ML QID
  2. TENEX [Suspect]
     Active Substance: GUANFACINE HYDROCHLORIDE
     Dosage: 1 MG QHS
  3. CLONAZEPAM. [Suspect]
     Active Substance: CLONAZEPAM
  4. MELATONIN [Suspect]
     Active Substance: MELATONIN
     Dosage: 3 MG 1/2 TAB QHS
  5. LIORESAL [Suspect]
     Active Substance: BACLOFEN
     Indication: MUSCLE SPASTICITY
  6. ORAL BACLOFEN [Suspect]
     Active Substance: BACLOFEN

REACTIONS (18)
  - Agitation [None]
  - Hydrocephalus [None]
  - Decubitus ulcer [None]
  - Wound [None]
  - Lethargy [None]
  - Osteomyelitis [None]
  - Shunt infection [None]
  - Seroma [None]
  - Pyrexia [None]
  - Cerebrospinal fluid leakage [None]
  - Cerebral palsy [None]
  - Decreased appetite [None]
  - Implant site extravasation [None]
  - Urinary tract infection [None]
  - Device power source issue [None]
  - Implant site infection [None]
  - Staphylococcus test positive [None]
  - Staphylococcal infection [None]

NARRATIVE: CASE EVENT DATE: 20140115
